FAERS Safety Report 16033985 (Version 1)
Quarter: 2019Q1

REPORT INFORMATION
  Report Type: Spontaneous
  Country: IT (occurrence: IT)
  Receive Date: 20190305
  Receipt Date: 20190305
  Transmission Date: 20190418
  Serious: Yes (Other)
  Sender: FDA-Public Use
  Company Number: PHHY2019IT045653

PATIENT
  Age: 46 Year
  Sex: Male

DRUGS (1)
  1. SECUKINUMAB. [Suspect]
     Active Substance: SECUKINUMAB
     Indication: PSORIASIS
     Dosage: (300 MG AT WEEKS 0, 1, 2, 3, 4 AND THEN EVERY 4 WEEKS)
     Route: 065

REACTIONS (1)
  - Hidradenitis [Recovering/Resolving]
